FAERS Safety Report 5237443-2 (Version None)
Quarter: 2007Q1

REPORT INFORMATION
  Report Type: 
  Country: None (occurrence: None)
  Receive Date: 20070213
  Receipt Date: 20050811
  Transmission Date: 20070707
  Serious: Yes (Hospitalization, Other)
  Sender: FDA-Public Use
  Company Number: AU-PFIZER INC-2005104648

PATIENT
  Sex: Female

DRUGS (7)
  1. LYRICA [Suspect]
     Indication: NEURALGIA
     Route: 048
  2. AVANZA [Concomitant]
     Route: 048
  3. NEURONTIN [Concomitant]
     Route: 048
  4. SERETIDE [Concomitant]
     Route: 055
  5. SPIRIVA ^PFIZER^ [Concomitant]
     Route: 055
  6. CLOFEN [Concomitant]
     Route: 048
  7. METHADONE HCL [Concomitant]
     Route: 048

REACTIONS (13)
  - DEHYDRATION [None]
  - DEPRESSED LEVEL OF CONSCIOUSNESS [None]
  - DIABETES INSIPIDUS [None]
  - GLASGOW COMA SCALE ABNORMAL [None]
  - HAEMATURIA [None]
  - HYPERTONIA [None]
  - HYPOKALAEMIA [None]
  - HYPOMAGNESAEMIA [None]
  - HYPOTHERMIA [None]
  - MUSCLE DISORDER [None]
  - OVERDOSE [None]
  - PNEUMOTHORAX [None]
  - POLYURIA [None]
